FAERS Safety Report 11264411 (Version 1)
Quarter: 2015Q3

REPORT INFORMATION
  Report Type: Spontaneous
  Country: US (occurrence: US)
  Receive Date: 20150713
  Receipt Date: 20150713
  Transmission Date: 20151125
  Serious: No
  Sender: FDA-Public Use
  Company Number: US-JNJFOC-20150616905

PATIENT
  Age: 55 Year
  Sex: Female
  Weight: 88 kg

DRUGS (2)
  1. REMICADE [Suspect]
     Active Substance: INFLIXIMAB
     Indication: CROHN^S DISEASE
     Route: 042
     Dates: start: 20150603
  2. REMICADE [Suspect]
     Active Substance: INFLIXIMAB
     Indication: CROHN^S DISEASE
     Route: 042
     Dates: start: 20150518

REACTIONS (6)
  - Hot flush [Not Recovered/Not Resolved]
  - Middle insomnia [Unknown]
  - Hyperhidrosis [Not Recovered/Not Resolved]
  - Poor venous access [Unknown]
  - Hunger [Unknown]
  - Pain in extremity [Recovered/Resolved]

NARRATIVE: CASE EVENT DATE: 201506
